FAERS Safety Report 12495487 (Version 1)
Quarter: 2016Q2

REPORT INFORMATION
  Report Type: Spontaneous
  Country: NG (occurrence: NG)
  Receive Date: 20160624
  Receipt Date: 20160624
  Transmission Date: 20160815
  Serious: Yes (Other)
  Sender: FDA-Public Use
  Company Number: NG-ROCHE-1782100

PATIENT
  Age: 49 Year
  Sex: Male

DRUGS (3)
  1. AVASTIN [Suspect]
     Active Substance: BEVACIZUMAB
     Indication: COLORECTAL CANCER METASTATIC
     Route: 042
  2. ELOXATIN [Concomitant]
     Active Substance: OXALIPLATIN
  3. XELODA [Suspect]
     Active Substance: CAPECITABINE
     Indication: COLORECTAL CANCER METASTATIC
     Dosage: 9 TABLETS TWICE DAILY
     Route: 048

REACTIONS (2)
  - Hepatomegaly [Unknown]
  - Jaundice [Unknown]
